FAERS Safety Report 23326807 (Version 1)
Quarter: 2023Q4

REPORT INFORMATION
  Report Type: Spontaneous
  Country: US (occurrence: US)
  Receive Date: 20231221
  Receipt Date: 20231221
  Transmission Date: 20240110
  Serious: Yes (Hospitalization, Other)
  Sender: FDA-Public Use
  Company Number: US-PFIZER INC-202300442918

PATIENT
  Age: 74 Year
  Sex: Female
  Weight: 68.04 kg

DRUGS (3)
  1. PAXLOVID [Suspect]
     Active Substance: NIRMATRELVIR\RITONAVIR
     Indication: COVID-19 treatment
     Dosage: 3 DF, 2X/DAY (3 TABLETS IN MORNING AND 3 TABLETS AT NIGHT)
     Route: 048
     Dates: start: 20231119, end: 20231123
  2. VALSARTAN [Concomitant]
     Active Substance: VALSARTAN
     Indication: Hypertension
     Dosage: UNK UNK, DAILY
  3. OZEMPIC [Concomitant]
     Active Substance: SEMAGLUTIDE
     Indication: Diabetes mellitus
     Dosage: UNK (1.0 DOSE, INJECTION, UNKNOWN DOSE UNITS, UNKNOWN FREQUENCY )
     Dates: start: 2020

REACTIONS (9)
  - Drug ineffective [Unknown]
  - Chest pain [Recovering/Resolving]
  - Arthralgia [Recovering/Resolving]
  - Abdominal pain upper [Recovering/Resolving]
  - Illness [Unknown]
  - Asthenia [Unknown]
  - Appetite disorder [Unknown]
  - Nausea [Unknown]
  - Hyperresponsive to stimuli [Unknown]

NARRATIVE: CASE EVENT DATE: 20231101
